FAERS Safety Report 12494632 (Version 1)
Quarter: 2016Q2

REPORT INFORMATION
  Report Type: Report from Study
  Country: BR (occurrence: BR)
  Receive Date: 20160624
  Receipt Date: 20160624
  Transmission Date: 20160815
  Serious: Yes (Hospitalization, Other)
  Sender: FDA-Public Use
  Company Number: PHHY2016BR085272

PATIENT
  Sex: Male
  Weight: 55 kg

DRUGS (1)
  1. OMNITROPE [Suspect]
     Active Substance: SOMATROPIN
     Indication: GROWTH HORMONE DEFICIENCY
     Dosage: 0.3 MG, 5 TIMES A WEEK
     Route: 058
     Dates: start: 20160513

REACTIONS (1)
  - Appendix disorder [Recovered/Resolved]
